FAERS Safety Report 21298582 (Version 2)
Quarter: 2022Q3

REPORT INFORMATION
  Report Type: Spontaneous
  Country: US (occurrence: US)
  Receive Date: 20220906
  Receipt Date: 20220916
  Transmission Date: 20221027
  Serious: Yes (Hospitalization, Other)
  Sender: FDA-Public Use
  Company Number: US-TAKEDA-2022TUS061107

PATIENT
  Age: 3 Year
  Sex: Male
  Weight: 15.8 kg

DRUGS (6)
  1. GATTEX [Suspect]
     Active Substance: TEDUGLUTIDE\WATER
     Indication: Functional gastrointestinal disorder
     Dosage: 0.63 MILLIGRAM, QD
     Route: 058
     Dates: start: 20220424, end: 20220609
  2. GATTEX [Suspect]
     Active Substance: TEDUGLUTIDE\WATER
     Indication: Functional gastrointestinal disorder
     Dosage: 0.63 MILLIGRAM, QD
     Route: 058
     Dates: start: 20220424, end: 20220609
  3. GATTEX [Suspect]
     Active Substance: TEDUGLUTIDE\WATER
     Indication: Functional gastrointestinal disorder
     Dosage: 0.63 MILLIGRAM, QD
     Route: 058
     Dates: start: 20220424, end: 20220609
  4. GATTEX [Suspect]
     Active Substance: TEDUGLUTIDE\WATER
     Indication: Functional gastrointestinal disorder
     Dosage: 0.63 MILLIGRAM, QD
     Route: 058
     Dates: start: 20220424, end: 20220609
  5. LANSOPRAZOLE [Concomitant]
     Active Substance: LANSOPRAZOLE
     Indication: Gastrooesophageal reflux disease
     Dosage: 7.5 MILLIGRAM, QD
     Route: 050
     Dates: start: 2019
  6. URSODIOL [Concomitant]
     Active Substance: URSODIOL
     Indication: Cholestasis
     Dosage: 1.5 MILLIGRAM, BID
     Route: 050
     Dates: start: 2019

REACTIONS (6)
  - Cholangitis [Recovered/Resolved]
  - Respiratory disorder [Recovered/Resolved]
  - Constipation [Recovered/Resolved]
  - Colectomy [Recovered/Resolved]
  - Wound [Recovered/Resolved]
  - Infection [Recovered/Resolved]

NARRATIVE: CASE EVENT DATE: 20220609
